FAERS Safety Report 18953224 (Version 1)
Quarter: 2021Q1

REPORT INFORMATION
  Report Type: Spontaneous
  Country: US (occurrence: US)
  Receive Date: 20210228
  Receipt Date: 20210228
  Transmission Date: 20210420
  Serious: Yes (Other)
  Sender: FDA-Public Use
  Company Number: None

PATIENT
  Age: 69 Year
  Sex: Female
  Weight: 78.75 kg

DRUGS (12)
  1. ZOPIDEM [Concomitant]
     Active Substance: ZOLPIDEM TARTRATE
  2. LORAZEPAM. [Concomitant]
     Active Substance: LORAZEPAM
  3. ZINC. [Concomitant]
     Active Substance: ZINC
  4. RESTASIS [Concomitant]
     Active Substance: CYCLOSPORINE
  5. MAXALT [Suspect]
     Active Substance: RIZATRIPTAN BENZOATE
  6. MULTI VITAMIN [Concomitant]
     Active Substance: VITAMINS
  7. AIMOVIG [Suspect]
     Active Substance: ERENUMAB-AOOE
     Indication: MIGRAINE
     Dosage: ?          QUANTITY:1 INJECTION(S);OTHER FREQUENCY:MONTH;?
     Route: 058
     Dates: start: 20210123, end: 20210224
  8. RIZATRIPTAN ODT [Concomitant]
     Active Substance: RIZATRIPTAN BENZOATE
  9. NP THYROID [Concomitant]
     Active Substance: LEVOTHYROXINE\LIOTHYRONINE
  10. VERAPAMIL [Concomitant]
     Active Substance: VERAPAMIL HYDROCHLORIDE
  11. VITAMIN D [Concomitant]
     Active Substance: VITAMIN D NOS
  12. B STRESS VITAMINS [Concomitant]

REACTIONS (10)
  - Drug ineffective [None]
  - Constipation [None]
  - Dizziness [None]
  - Sinusitis [None]
  - Fatigue [None]
  - Abdominal discomfort [None]
  - Headache [None]
  - Arthralgia [None]
  - Pain in extremity [None]
  - Palpitations [None]

NARRATIVE: CASE EVENT DATE: 20210224
